FAERS Safety Report 19085781 (Version 1)
Quarter: 2021Q2

REPORT INFORMATION
  Report Type: Report from Study
  Country: US (occurrence: US)
  Receive Date: 20210402
  Receipt Date: 20210402
  Transmission Date: 20210717
  Serious: Yes (Hospitalization, Other)
  Sender: FDA-Public Use
  Company Number: US-BAUSCH-BL-2020-000452

PATIENT
  Age: 67 Year
  Sex: Male
  Weight: 86.26 kg

DRUGS (1)
  1. XIFAXAN [Suspect]
     Active Substance: RIFAXIMIN
     Indication: HEPATIC ENCEPHALOPATHY
     Dosage: ABOUT 2?3 YEARS AGO
     Route: 048
     Dates: end: 2020

REACTIONS (4)
  - Intentional product use issue [Unknown]
  - Nephrolithiasis [Recovered/Resolved]
  - Nephrectomy [Unknown]
  - Intestinal resection [Unknown]

NARRATIVE: CASE EVENT DATE: 2019
